FAERS Safety Report 10660464 (Version 1)
Quarter: 2014Q4

REPORT INFORMATION
  Report Type: Spontaneous
  Country: US (occurrence: US)
  Receive Date: 20141217
  Receipt Date: 20141217
  Transmission Date: 20150529
  Serious: No
  Sender: FDA-Public Use
  Company Number: US-GLAXOSMITHKLINE-A1085934A

PATIENT

DRUGS (7)
  1. VOTRIENT [Suspect]
     Active Substance: PAZOPANIB HYDROCHLORIDE
     Indication: RENAL CANCER
     Route: 048
     Dates: start: 20140729
  2. METOPROLOL [Concomitant]
     Active Substance: METOPROLOL
  3. HYDROCODONE/APAP [Concomitant]
     Active Substance: ACETAMINOPHEN\HYDROCODONE
  4. GLYBURIDE. [Concomitant]
     Active Substance: GLYBURIDE
  5. CLONIDINE. [Concomitant]
     Active Substance: CLONIDINE
  6. BUMETANIDE. [Concomitant]
     Active Substance: BUMETANIDE
  7. LISINOPRIL. [Concomitant]
     Active Substance: LISINOPRIL

REACTIONS (3)
  - Blood potassium increased [Unknown]
  - Heart rate decreased [Unknown]
  - Hypertension [Not Recovered/Not Resolved]

NARRATIVE: CASE EVENT DATE: 20140818
